FAERS Safety Report 7970052-0 (Version None)
Quarter: 2011Q4

REPORT INFORMATION
  Report Type: 
  Country: None (occurrence: None)
  Receive Date: 20111212
  Receipt Date: 20110928
  Transmission Date: 20120403
  Serious: No
  Sender: FDA-Public Use
  Company Number: US-BAYER-2011-097315

PATIENT
  Sex: Female
  Weight: 79.365 kg

DRUGS (3)
  1. ALEVE-D SINUS + COLD [Suspect]
     Indication: HYPERSENSITIVITY
     Dosage: 1 DF, BID
     Route: 048
     Dates: start: 20110924, end: 20111004
  2. ALEVE-D SINUS + COLD [Suspect]
     Indication: PAIN
  3. ALEVE (CAPLET) [Suspect]
     Dosage: UNK
     Route: 048

REACTIONS (2)
  - NO ADVERSE EVENT [None]
  - DYSPEPSIA [None]
